FAERS Safety Report 23089250 (Version 5)
Quarter: 2023Q4

REPORT INFORMATION
  Report Type: Report from Study
  Country: TR (occurrence: None)
  Receive Date: 20231020
  Receipt Date: 20231208
  Transmission Date: 20240109
  Serious: Yes (Death, Hospitalization)
  Sender: FDA-Public Use
  Company Number: TR-ROCHE-3441130

PATIENT
  Age: 58 Year
  Sex: Male
  Weight: 105 kg

DRUGS (66)
  1. ATEZOLIZUMAB [Suspect]
     Active Substance: ATEZOLIZUMAB
     Indication: Small cell lung cancer extensive stage
     Dosage: ON 20/JUN/2023, HE RECEIVED MOST RECENT DOSE OF ATEZOLIZUMAB 1200 MG PRIOR TO AE/SAE ONSET.
     Route: 042
     Dates: start: 20221101
  2. CARBOPLATIN [Suspect]
     Active Substance: CARBOPLATIN
     Indication: Small cell lung cancer extensive stage
     Dosage: ON 03/JAN/2023, HE RECEIVED MOST RECENT DOSE OF CARBOPLATIN 500 MG PRIOR TO AE/SAE ONSET.
     Route: 042
     Dates: start: 20221101
  3. CARBOPLATIN [Suspect]
     Active Substance: CARBOPLATIN
     Dosage: ON 03/JAN/2023, HE RECEIVED MOST RECENT DOSE OF CARBOPLATIN 500 MG PRIOR TO AE/SAE ONSET.
     Route: 042
  4. ETOPOSIDE [Suspect]
     Active Substance: ETOPOSIDE
     Indication: Small cell lung cancer extensive stage
     Dosage: ON 05/JAN/2023, HE RECEIVED MOST RECENT DOSE OF ETOPOSIDE 215 MG PRIOR TO AE/SAE ONSET.
     Route: 042
     Dates: start: 20221101
  5. ETOPOSIDE [Suspect]
     Active Substance: ETOPOSIDE
     Dosage: ON 05/JAN/2023, HE RECEIVED MOST RECENT DOSE OF ETOPOSIDE 215 MG PRIOR TO AE/SAE ONSET.
     Route: 042
  6. COVINAVIR [Concomitant]
     Indication: COVID-19
     Dates: start: 20221215
  7. ANDOREX [Concomitant]
     Indication: COVID-19
     Dates: start: 20221215
  8. NEURONTIN [Concomitant]
     Active Substance: GABAPENTIN
     Indication: Bone pain
     Dates: start: 20230509
  9. NEURONTIN [Concomitant]
     Active Substance: GABAPENTIN
     Indication: Neuralgia
  10. IBUPROFEN [Concomitant]
     Active Substance: IBUPROFEN
     Indication: Bone pain
  11. NEXIUM [Concomitant]
     Active Substance: ESOMEPRAZOLE MAGNESIUM
     Indication: Gastrooesophageal reflux disease
     Dates: start: 20230620
  12. NEXIUM [Concomitant]
     Active Substance: ESOMEPRAZOLE MAGNESIUM
     Indication: Neuralgia
  13. ONZYD [Concomitant]
     Indication: Nausea
     Dates: start: 20230620
  14. ONZYD [Concomitant]
     Indication: Neuralgia
  15. METOCLOPRAMIDE [Concomitant]
     Active Substance: METOCLOPRAMIDE
     Indication: Nausea
     Dates: start: 20230620
  16. METOCLOPRAMIDE [Concomitant]
     Active Substance: METOCLOPRAMIDE
     Indication: Neuralgia
  17. D-COLEFOR [Concomitant]
     Indication: Chronic gastritis
     Dates: start: 20230714
  18. D-COLEFOR [Concomitant]
     Indication: Neuralgia
  19. PAROXETINE HYDROCHLORIDE [Concomitant]
     Active Substance: PAROXETINE HYDROCHLORIDE\PAROXETINE HYDROCHLORIDE ANHYDROUS
     Indication: Prophylaxis
     Dates: start: 20230919, end: 20230926
  20. PAROXETINE HYDROCHLORIDE [Concomitant]
     Active Substance: PAROXETINE HYDROCHLORIDE\PAROXETINE HYDROCHLORIDE ANHYDROUS
     Indication: Neuralgia
     Dates: start: 20230919, end: 20230926
  21. SUCRALFATE [Concomitant]
     Active Substance: SUCRALFATE
     Indication: Chronic gastritis
     Dates: start: 20230704
  22. SUCRALFATE [Concomitant]
     Active Substance: SUCRALFATE
     Indication: Neuralgia
  23. KYTRIL [Concomitant]
     Active Substance: GRANISETRON HYDROCHLORIDE
     Indication: Chronic gastritis
     Dates: start: 20230704
  24. KYTRIL [Concomitant]
     Active Substance: GRANISETRON HYDROCHLORIDE
     Indication: Neuralgia
  25. PANTOPRAZOLE SODIUM [Concomitant]
     Active Substance: PANTOPRAZOLE SODIUM
     Indication: Chronic gastritis
     Dates: start: 20230701
  26. PANTOPRAZOLE SODIUM [Concomitant]
     Active Substance: PANTOPRAZOLE SODIUM
     Indication: Neuralgia
     Dates: start: 20231004, end: 20231009
  27. PANTOPRAZOLE SODIUM [Concomitant]
     Active Substance: PANTOPRAZOLE SODIUM
     Indication: Volvulus
     Dates: start: 20231008, end: 20231008
  28. PANTOPRAZOLE SODIUM [Concomitant]
     Active Substance: PANTOPRAZOLE SODIUM
     Dates: start: 20231016, end: 20231016
  29. URSODIOL [Concomitant]
     Active Substance: URSODIOL
     Indication: Chronic gastritis
     Dates: start: 20230703
  30. URSODIOL [Concomitant]
     Active Substance: URSODIOL
     Indication: Neuralgia
     Dates: start: 20230919, end: 20230926
  31. MOTILIUM [Concomitant]
     Active Substance: DOMPERIDONE
     Indication: Chronic gastritis
     Dates: start: 20230704
  32. MOTILIUM [Concomitant]
     Active Substance: DOMPERIDONE
     Indication: Neuralgia
  33. ALDACTONE [Concomitant]
     Active Substance: SPIRONOLACTONE
     Indication: Chronic gastritis
     Dates: start: 20230712
  34. ALDACTONE [Concomitant]
     Active Substance: SPIRONOLACTONE
     Indication: Neuralgia
  35. MEGACE [Concomitant]
     Active Substance: MEGESTROL ACETATE
     Indication: Chronic gastritis
     Dates: start: 20230927, end: 20231004
  36. MEGACE [Concomitant]
     Active Substance: MEGESTROL ACETATE
     Indication: Neuralgia
  37. METHYLPREDNISOLONE [Concomitant]
     Active Substance: METHYLPREDNISOLONE
     Indication: Chronic gastritis
     Route: 048
     Dates: start: 20230923
  38. METHYLPREDNISOLONE [Concomitant]
     Active Substance: METHYLPREDNISOLONE
     Indication: Neuralgia
  39. TRAMOSEL [Concomitant]
     Indication: Volvulus
     Dates: start: 20231004, end: 20231008
  40. TRAMOSEL [Concomitant]
     Dates: start: 20231008, end: 20231008
  41. PARACEROL [Concomitant]
     Indication: Volvulus
     Dates: start: 20231004, end: 20231007
  42. PARACEROL [Concomitant]
     Dates: start: 20231004, end: 20231004
  43. POLGYL [Concomitant]
     Indication: Volvulus
     Dates: start: 20231004, end: 20231008
  44. ONDANSETRON HYDROCHLORIDE [Concomitant]
     Active Substance: ONDANSETRON HYDROCHLORIDE
     Indication: Volvulus
     Dates: start: 20231004, end: 20231004
  45. MOXIFLOXACIN [Concomitant]
     Active Substance: MOXIFLOXACIN
     Indication: Volvulus
     Dates: start: 20231004, end: 20231004
  46. IZOLEN M DEKSTROZLU SOLUSYON, POLIFLEKS [Concomitant]
     Indication: Volvulus
     Dates: start: 20231004, end: 20231004
  47. IZOLEN S [Concomitant]
     Indication: Volvulus
     Dosage: SUBSEQUENT DOSES ON 15/OCT/2023
     Dates: start: 20231005, end: 20231007
  48. POLINUTHREE EN 550 [Concomitant]
     Indication: Volvulus
     Dates: start: 20231004, end: 20231004
  49. METOCLOPRAMIDE HYDROCHLORIDE [Concomitant]
     Active Substance: METOCLOPRAMIDE HYDROCHLORIDE
     Indication: Volvulus
     Dates: start: 20231005, end: 20231007
  50. ENOXAPARIN SODIUM [Concomitant]
     Active Substance: ENOXAPARIN SODIUM
     Indication: Volvulus
     Dates: start: 20231005, end: 20231009
  51. POTASSIUM CHLORIDE [Concomitant]
     Active Substance: POTASSIUM CHLORIDE
     Indication: Volvulus
     Dates: start: 20231006, end: 20231008
  52. ALBUMIN HUMAN [Concomitant]
     Active Substance: ALBUMIN HUMAN
     Indication: Volvulus
     Dates: start: 20231006, end: 20231007
  53. ALBUMIN HUMAN [Concomitant]
     Active Substance: ALBUMIN HUMAN
     Dates: start: 20231016, end: 20231016
  54. ISOTONIC SODIUM CHLORIDE SOLUTION [Concomitant]
     Active Substance: SODIUM CHLORIDE
     Indication: Volvulus
     Dates: start: 20231006, end: 20231009
  55. ISOTONIC SODIUM CHLORIDE SOLUTION [Concomitant]
     Active Substance: SODIUM CHLORIDE
     Dates: start: 20231015, end: 20231016
  56. KENACORT A ORABASE [Concomitant]
     Indication: Volvulus
     Dates: start: 20231006, end: 20231006
  57. METEOSPASMYL [Concomitant]
     Indication: Volvulus
     Dates: start: 20231006, end: 20231006
  58. PICOPREP [Concomitant]
     Active Substance: ANHYDROUS CITRIC ACID\MAGNESIUM OXIDE\SODIUM PICOSULFATE
     Indication: Volvulus
     Dates: start: 20231008, end: 20231008
  59. KETAVEL [Concomitant]
     Indication: Volvulus
     Dates: start: 20231009, end: 20231009
  60. PREDNISOLONE [Concomitant]
     Active Substance: PREDNISOLONE
     Indication: Adhesion
     Route: 048
     Dates: start: 20230927, end: 20231004
  61. JETMONAL [Concomitant]
     Dates: start: 20230927, end: 20230927
  62. ADRENALIN [Concomitant]
     Active Substance: EPINEPHRINE
     Dates: start: 20230927, end: 20230927
  63. LACTATED RINGERS SOLUTION [Concomitant]
     Active Substance: CALCIUM CHLORIDE\POTASSIUM CHLORIDE\SODIUM CHLORIDE\SODIUM LACTATE
  64. PROPOFOL [Concomitant]
     Active Substance: PROPOFOL
     Dates: start: 20230927, end: 20230927
  65. SODIUM BICARBONATE [Concomitant]
     Active Substance: SODIUM BICARBONATE
     Dates: start: 20231016, end: 20231016
  66. SEDOZOLAM [Concomitant]
     Dates: start: 20231016, end: 20231016

REACTIONS (1)
  - Sepsis [Fatal]

NARRATIVE: CASE EVENT DATE: 20231015
